FAERS Safety Report 13775495 (Version 1)
Quarter: 2017Q3

REPORT INFORMATION
  Report Type: Spontaneous
  Country: DE (occurrence: DE)
  Receive Date: 20170721
  Receipt Date: 20170721
  Transmission Date: 20171127
  Serious: Yes (Hospitalization)
  Sender: FDA-Public Use
  Company Number: DE-JNJFOC-20170714485

PATIENT
  Age: 79 Year
  Sex: Female

DRUGS (1)
  1. XARELTO [Suspect]
     Active Substance: RIVAROXABAN
     Indication: ATRIAL FIBRILLATION
     Route: 048

REACTIONS (8)
  - Brain contusion [Unknown]
  - Craniocerebral injury [Unknown]
  - Anticoagulation drug level above therapeutic [Recovered/Resolved]
  - Fall [Unknown]
  - Subdural haematoma [Recovered/Resolved]
  - Hemiparesis [Recovered/Resolved]
  - Anti factor X activity increased [Recovered/Resolved]
  - Subarachnoid haemorrhage [Unknown]
